FAERS Safety Report 5591045-7 (Version None)
Quarter: 2008Q1

REPORT INFORMATION
  Report Type: 
  Country: None (occurrence: None)
  Receive Date: 20080115
  Receipt Date: 20080109
  Transmission Date: 20080703
  Serious: Yes (Hospitalization)
  Sender: FDA-Public Use
  Company Number: PHRM2008FR00476

PATIENT
  Age: 41 Year
  Sex: Male

DRUGS (8)
  1. NEUPOGEN [Suspect]
     Route: 042
     Dates: start: 20070905
  2. ACYCLOVIR [Suspect]
     Dosage: 250 MG, TID
     Route: 042
     Dates: start: 20070914
  3. TAZOCILLINE [Suspect]
     Dosage: 4 G, QID
     Route: 042
     Dates: start: 20070831, end: 20071009
  4. COLIMYCINE [Suspect]
     Route: 048
     Dates: start: 20070901
  5. NOXAFIL [Suspect]
     Dosage: 200 MG, TID
     Route: 042
     Dates: start: 20070901, end: 20071004
  6. ESOMEPRAZOLE [Suspect]
     Route: 042
     Dates: start: 20070914
  7. TAVANIC [Suspect]
     Dates: start: 20071002
  8. NEORAL [Suspect]
     Indication: BONE MARROW FAILURE
     Dosage: 150 MG, BID
     Route: 048
     Dates: start: 20070831

REACTIONS (7)
  - ALANINE AMINOTRANSFERASE INCREASED [None]
  - ASPARTATE AMINOTRANSFERASE INCREASED [None]
  - BLOOD ALKALINE PHOSPHATASE INCREASED [None]
  - BLOOD BILIRUBIN INCREASED [None]
  - GAMMA-GLUTAMYLTRANSFERASE INCREASED [None]
  - HEPATITIS CHOLESTATIC [None]
  - JAUNDICE [None]
